FAERS Safety Report 9682018 (Version 2)
Quarter: 2013Q4

REPORT INFORMATION
  Report Type: Report from Study
  Country: US (occurrence: US)
  Receive Date: 20131111
  Receipt Date: 20131111
  Transmission Date: 20140711
  Serious: Yes (Hospitalization)
  Sender: FDA-Public Use
  Company Number: US-ABBVIE-10P-163-0670983-00

PATIENT
  Sex: Female

DRUGS (11)
  1. HUMIRA [Suspect]
     Indication: RHEUMATOID ARTHRITIS
     Dates: start: 2003
  2. HUMIRA [Suspect]
     Dates: end: 2007
  3. REMICADE [Suspect]
     Indication: RHEUMATOID ARTHRITIS
     Dates: start: 2008, end: 2008
  4. CIMZIA [Suspect]
     Indication: RHEUMATOID ARTHRITIS
     Dates: end: 2011
  5. EXALGO [Concomitant]
     Indication: PAIN
  6. AMBIEN [Concomitant]
     Indication: PRODUCT USED FOR UNKNOWN INDICATION
     Route: 048
  7. TRAZODONE [Concomitant]
     Indication: PRODUCT USED FOR UNKNOWN INDICATION
  8. DILAUDID [Concomitant]
     Indication: PAIN
     Route: 042
  9. XANAX [Concomitant]
     Indication: ANXIETY
  10. RELPAX [Concomitant]
     Indication: MIGRAINE
     Dosage: 40 MG 2 TABS MAX AD
  11. TRAMADOL [Concomitant]
     Indication: MIGRAINE

REACTIONS (11)
  - Loss of consciousness [Recovering/Resolving]
  - Cardiac disorder [Recovering/Resolving]
  - Dyspnoea [Recovering/Resolving]
  - Abdominal pain [Recovering/Resolving]
  - Abdominal distension [Recovering/Resolving]
  - Oral herpes [Not Recovered/Not Resolved]
  - Rheumatoid arthritis [Unknown]
  - Uterine spasm [Not Recovered/Not Resolved]
  - Rhinorrhoea [Not Recovered/Not Resolved]
  - Nausea [Not Recovered/Not Resolved]
  - Gastrooesophageal reflux disease [Not Recovered/Not Resolved]
